FAERS Safety Report 10634721 (Version 1)
Quarter: 2014Q4

REPORT INFORMATION
  Report Type: Spontaneous
  Country: GR (occurrence: GR)
  Receive Date: 20141205
  Receipt Date: 20141205
  Transmission Date: 20150529
  Serious: Yes (Other)
  Sender: FDA-Public Use
  Company Number: GR-ASTELLAS-2014EU013846

PATIENT
  Age: 68 Year
  Sex: Female

DRUGS (1)
  1. MYCAMINE [Suspect]
     Active Substance: MICAFUNGIN SODIUM
     Indication: PRODUCT USED FOR UNKNOWN INDICATION
     Dosage: UNK, UNKNOWN FREQ.
     Route: 048
     Dates: start: 201410

REACTIONS (2)
  - Haemorrhage subcutaneous [Not Recovered/Not Resolved]
  - Ecchymosis [Not Recovered/Not Resolved]

NARRATIVE: CASE EVENT DATE: 20141017
